FAERS Safety Report 17956464 (Version 1)
Quarter: 2020Q2

REPORT INFORMATION
  Report Type: Spontaneous
  Country: US (occurrence: US)
  Receive Date: 20200627
  Receipt Date: 20200627
  Transmission Date: 20200714
  Serious: No
  Sender: FDA-Public Use
  Company Number: None

PATIENT
  Age: 66 Year
  Sex: Female
  Weight: 74.25 kg

DRUGS (4)
  1. CRANBERRY. [Concomitant]
     Active Substance: CRANBERRY
  2. CIPROFLOXACIN. [Suspect]
     Active Substance: CIPROFLOXACIN
     Indication: URINARY TRACT INFECTION
     Route: 048
     Dates: start: 20200617, end: 20200627
  3. ONE-A-DAY NOS [Concomitant]
     Active Substance: MINERALS\VITAMINS
  4. SYNTHROID [Concomitant]
     Active Substance: LEVOTHYROXINE SODIUM

REACTIONS (3)
  - Back pain [None]
  - Abdominal discomfort [None]
  - Pain in extremity [None]

NARRATIVE: CASE EVENT DATE: 20200627
